FAERS Safety Report 18430911 (Version 2)
Quarter: 2020Q4

REPORT INFORMATION
  Report Type: Spontaneous
  Country: ES (occurrence: ES)
  Receive Date: 20201027
  Receipt Date: 20201029
  Transmission Date: 20210114
  Serious: Yes (Hospitalization, Other)
  Sender: FDA-Public Use
  Company Number: ES-BAYER-2020-214332

PATIENT
  Age: 32 Year
  Sex: Female

DRUGS (1)
  1. KYLEENA [Suspect]
     Active Substance: LEVONORGESTREL
     Dosage: 17.5 ?G PER DAY,  CONTINUOUSLY
     Route: 015
     Dates: start: 20190220, end: 20200817

REACTIONS (11)
  - Vulvovaginal pain [None]
  - Pelvic pain [None]
  - Ectopic pregnancy with contraceptive device [None]
  - Menstruation irregular [None]
  - Dyspareunia [None]
  - Haemoperitoneum [None]
  - Vulvovaginal pruritus [None]
  - Drug ineffective [None]
  - Vaginal discharge [None]
  - Gastritis [None]
  - Vulvovaginal burning sensation [None]

NARRATIVE: CASE EVENT DATE: 20190506
